FAERS Safety Report 4552785-1 (Version None)
Quarter: 2005Q1

REPORT INFORMATION
  Report Type: 
  Country: None (occurrence: None)
  Receive Date: 20050111
  Receipt Date: 20050111
  Transmission Date: 20050727
  Serious: Yes (Hospitalization)
  Sender: FDA-Public Use
  Company Number: None

PATIENT
  Age: 86 Year
  Sex: Male
  Weight: 79.8 kg

DRUGS (9)
  1. HEPARIN [Suspect]
  2. PROTONIX [Concomitant]
  3. TOPROL-XL [Concomitant]
  4. RENAGEL [Concomitant]
  5. NEPHRO-VITE [Concomitant]
  6. COUMADIN [Concomitant]
  7. DIGOXIN [Concomitant]
  8. CELEBREX [Suspect]
  9. COUMADIN [Suspect]

REACTIONS (2)
  - ARTERIOVENOUS FISTULA SITE HAEMORRHAGE [None]
  - POST PROCEDURAL HAEMORRHAGE [None]
